FAERS Safety Report 8111024-5 (Version None)
Quarter: 2012Q1

REPORT INFORMATION
  Report Type: 
  Country: None (occurrence: None)
  Receive Date: 20120203
  Receipt Date: 20110218
  Transmission Date: 20120608
  Serious: No
  Sender: FDA-Public Use
  Company Number: US-GLAXOSMITHKLINE-A0914454A

PATIENT
  Sex: Male

DRUGS (2)
  1. ADDERALL 5 [Concomitant]
  2. LAMICTAL [Suspect]
     Indication: AFFECTIVE DISORDER
     Dosage: 200MG TWICE PER DAY
     Route: 048
     Dates: start: 20060101

REACTIONS (3)
  - OVERDOSE [None]
  - MEMORY IMPAIRMENT [None]
  - COGNITIVE DISORDER [None]
